FAERS Safety Report 5486877-X (Version None)
Quarter: 2007Q4

REPORT INFORMATION
  Report Type: 
  Country: None (occurrence: None)
  Receive Date: 20071016
  Receipt Date: 20070928
  Transmission Date: 20080405
  Serious: Yes (Hospitalization)
  Sender: FDA-Public Use
  Company Number: GB-AVENTIS-200717862GDDC

PATIENT
  Age: 75 Year
  Sex: Female
  Weight: 88.1 kg

DRUGS (9)
  1. LANTUS [Suspect]
     Route: 058
     Dates: start: 20070701
  2. OPTICLIK (INSULIN INJECTION PEN) [Suspect]
  3. DIAMICRON [Concomitant]
     Route: 048
  4. FUROSEMIDE [Concomitant]
     Route: 048
  5. WARFARIN SODIUM [Concomitant]
     Dosage: DOSE: 5+3+1
     Route: 048
  6. BISOPROLOL FUMARATE [Concomitant]
     Route: 048
  7. PARACETAMOL [Concomitant]
     Route: 048
  8. LEVOTHYROXINE SODIUM [Concomitant]
     Route: 048
  9. SIMVASTATIN [Concomitant]
     Route: 048

REACTIONS (1)
  - ATRIAL FIBRILLATION [None]
